FAERS Safety Report 19405017 (Version 1)
Quarter: 2021Q2

REPORT INFORMATION
  Report Type: Report from Study
  Country: IE (occurrence: IE)
  Receive Date: 20210611
  Receipt Date: 20210611
  Transmission Date: 20210717
  Serious: Yes (Other)
  Sender: FDA-Public Use
  Company Number: IE-ELI_LILLY_AND_COMPANY-IE202106002930

PATIENT
  Age: 20 Year
  Sex: Male

DRUGS (1)
  1. OLUMIANT [Suspect]
     Active Substance: BARICITINIB
     Indication: DERMATITIS ATOPIC
     Dosage: 2 MG, DAILY
     Route: 065
     Dates: start: 201911, end: 202005

REACTIONS (1)
  - T-cell lymphoma [Unknown]
